FAERS Safety Report 6034423-4 (Version None)
Quarter: 2009Q1

REPORT INFORMATION
  Report Type: 
  Country: None (occurrence: None)
  Receive Date: 20090112
  Receipt Date: 20090108
  Transmission Date: 20090719
  Serious: Yes (Hospitalization)
  Sender: FDA-Public Use
  Company Number: B0537538A

PATIENT
  Age: 76 Year
  Sex: Female

DRUGS (7)
  1. SERETIDE [Suspect]
     Indication: ASTHMA
     Dosage: 2PUFF TWICE PER DAY
     Route: 055
     Dates: start: 20080101
  2. VENTOLIN [Suspect]
     Indication: ASTHMA
     Dosage: 100MCG AS REQUIRED
     Route: 055
  3. PERINDOPRIL [Suspect]
     Indication: HYPERTENSION
  4. PRAVASTATIN [Suspect]
     Indication: HYPERCHOLESTEROLAEMIA
     Dates: start: 20070101
  5. QUININE [Suspect]
     Indication: MUSCLE SPASMS
     Dates: start: 20070101
  6. ADCAL [Suspect]
     Indication: BONE DENSITOMETRY
     Dates: start: 20070101
  7. WARFARIN [Suspect]
     Indication: THROMBOSIS
     Dates: start: 20080101, end: 20080101

REACTIONS (6)
  - COUGH [None]
  - DYSPNOEA [None]
  - MIDDLE INSOMNIA [None]
  - NASOPHARYNGITIS [None]
  - PULMONARY THROMBOSIS [None]
  - THROMBOSIS [None]
